FAERS Safety Report 15951122 (Version 2)
Quarter: 2019Q1

REPORT INFORMATION
  Report Type: Spontaneous
  Country: US (occurrence: US)
  Receive Date: 20190211
  Receipt Date: 20190328
  Transmission Date: 20190417
  Serious: No
  Sender: FDA-Public Use
  Company Number: US-BIOGEN-2019BI00693050

PATIENT
  Sex: Male
  Weight: 107.14 kg

DRUGS (3)
  1. TECFIDERA [Suspect]
     Active Substance: DIMETHYL FUMARATE
     Indication: MULTIPLE SCLEROSIS
     Dosage: STARTED AFTER BEING ON TECFIDERA 120 MG BID FOR 7 DAYS
     Route: 050
  2. PAROXETINE. [Concomitant]
     Active Substance: PAROXETINE
     Indication: PRODUCT USED FOR UNKNOWN INDICATION
     Route: 050
  3. TECFIDERA [Suspect]
     Active Substance: DIMETHYL FUMARATE
     Dosage: STARTED ABOUT 2 MONTHS AGO, TOOK TECFIDERA 120 MG TWICE A DAY FOR 7 DAYS
     Route: 065

REACTIONS (3)
  - Weight decreased [Not Recovered/Not Resolved]
  - Appetite disorder [Not Recovered/Not Resolved]
  - Diarrhoea [Unknown]
